FAERS Safety Report 6437073-0 (Version None)
Quarter: 2009Q4

REPORT INFORMATION
  Report Type: 
  Country: None (occurrence: None)
  Receive Date: 20091112
  Receipt Date: 20091030
  Transmission Date: 20100525
  Serious: Yes (Hospitalization)
  Sender: FDA-Public Use
  Company Number: US-ELI_LILLY_AND_COMPANY-US200911000624

PATIENT
  Age: 55 Year
  Sex: Male

DRUGS (2)
  1. CYMBALTA [Suspect]
     Indication: DEPRESSION
     Dosage: 60 MG, UNK
     Dates: start: 20090101
  2. CYMBALTA [Suspect]
     Dosage: 90 MG, UNK
     Dates: start: 20091001

REACTIONS (2)
  - ATRIAL FIBRILLATION [None]
  - LOSS OF CONSCIOUSNESS [None]
